FAERS Safety Report 5450467-5 (Version None)
Quarter: 2007Q3

REPORT INFORMATION
  Report Type: 
  Country: None (occurrence: None)
  Receive Date: 20070912
  Receipt Date: 20070906
  Transmission Date: 20080115
  Serious: Yes (Life-Threatening, Hospitalization)
  Sender: FDA-Public Use
  Company Number: US-BOEHRINGER INGELHEIM PHARMACEUTICALS, INC.-2007-BP-18555BP

PATIENT
  Age: 91 Year
  Sex: Female

DRUGS (5)
  1. SPIRIVA [Suspect]
     Indication: CHRONIC OBSTRUCTIVE PULMONARY DISEASE
     Route: 055
     Dates: start: 20060101, end: 20060201
  2. SPIRIVA [Suspect]
     Indication: BRONCHIAL HYPERREACTIVITY
  3. ALBUTEROL [Concomitant]
     Route: 055
  4. FLOVENT [Concomitant]
  5. GLUCOPHAGE [Concomitant]

REACTIONS (3)
  - ATRIAL FIBRILLATION [None]
  - SUPRAVENTRICULAR TACHYCARDIA [None]
  - TACHYCARDIA [None]
